FAERS Safety Report 18890547 (Version 1)
Quarter: 2021Q1

REPORT INFORMATION
  Report Type: Spontaneous
  Country: FR (occurrence: FR)
  Receive Date: 20210214
  Receipt Date: 20210214
  Transmission Date: 20210420
  Serious: Yes (Hospitalization)
  Sender: FDA-Public Use
  Company Number: FR-BEH-2020125661

PATIENT
  Age: 57 Year
  Sex: Female
  Weight: 108 kg

DRUGS (7)
  1. FENOFIBRATE. [Concomitant]
     Active Substance: FENOFIBRATE
  2. INDAPAMIDE. [Concomitant]
     Active Substance: INDAPAMIDE
  3. CORTANCYL [Concomitant]
     Active Substance: PREDNISONE
  4. PRIVIGEN [Suspect]
     Active Substance: HUMAN IMMUNOGLOBULIN G
     Indication: IMMUNODEFICIENCY COMMON VARIABLE
     Dosage: 40 GRAM, TOT
     Route: 041
     Dates: start: 20201012, end: 20201012
  5. PERINDOPRIL [Concomitant]
     Active Substance: PERINDOPRIL
  6. ICAZ [Concomitant]
     Active Substance: ISRADIPINE
  7. BARICITINIB. [Concomitant]
     Active Substance: BARICITINIB

REACTIONS (2)
  - Erythema [Recovered/Resolved]
  - Infusion related reaction [Recovered/Resolved]

NARRATIVE: CASE EVENT DATE: 20201012
